FAERS Safety Report 11182180 (Version 1)
Quarter: 2015Q2

REPORT INFORMATION
  Report Type: Spontaneous
  Country: US (occurrence: US)
  Receive Date: 20150611
  Receipt Date: 20150611
  Transmission Date: 20150821
  Serious: No
  Sender: FDA-Public Use
  Company Number: US-ASTELLAS-2015US011407

PATIENT
  Sex: Male

DRUGS (1)
  1. XTANDI [Suspect]
     Active Substance: ENZALUTAMIDE
     Indication: PROSTATE CANCER
     Dosage: 160 MG (4 CAPSULES OF 40 MG), ONCE DAILY
     Route: 048
     Dates: start: 20150214

REACTIONS (3)
  - Hot flush [Unknown]
  - Dizziness [Unknown]
  - Fatigue [Not Recovered/Not Resolved]
